FAERS Safety Report 8226000-1 (Version None)
Quarter: 2012Q1

REPORT INFORMATION
  Report Type: 
  Country: None (occurrence: None)
  Receive Date: 20120321
  Receipt Date: 20120319
  Transmission Date: 20120608
  Serious: No
  Sender: FDA-Public Use
  Company Number: US-PFIZER INC-2012041261

PATIENT
  Sex: Male
  Weight: 104 kg

DRUGS (8)
  1. NEXIUM [Concomitant]
     Dosage: UNK
  2. TERAZOSIN [Concomitant]
     Dosage: UNK
  3. NEURONTIN [Suspect]
     Dosage: UNK
  4. NEURONTIN [Suspect]
     Dosage: UNK
  5. LIPITOR [Concomitant]
     Dosage: UNK
  6. LYRICA [Suspect]
     Indication: NEUROPATHY PERIPHERAL
     Dosage: 100 MG, 3X/DAY
     Route: 048
     Dates: start: 20120101, end: 20120319
  7. ATENOLOL [Concomitant]
     Dosage: UNK
  8. EZETIMIBE [Concomitant]
     Dosage: UNK

REACTIONS (5)
  - HYPOAESTHESIA [None]
  - VITAMIN B12 DECREASED [None]
  - DRUG INEFFECTIVE [None]
  - WEIGHT INCREASED [None]
  - PARAESTHESIA [None]
